FAERS Safety Report 4881690-6 (Version None)
Quarter: 2005Q4

REPORT INFORMATION
  Report Type: 
  Country: None (occurrence: None)
  Receive Date: 20051201
  Receipt Date: 20051118
  Transmission Date: 20060501
  Serious: Yes (Other)
  Sender: FDA-Public Use
  Company Number: 247767

PATIENT
  Age: 41 Year
  Sex: Female
  Weight: 113.4 kg

DRUGS (11)
  1. NOVOLOG MIX 70/30 [Suspect]
     Indication: INSULIN-REQUIRING TYPE II DIABETES MELLITUS
     Dosage: 52 IU, QD, SUBCUTANEOUS
     Route: 058
     Dates: start: 20051010
  2. NOVOLOG [Suspect]
     Indication: INSULIN-REQUIRING TYPE II DIABETES MELLITUS
     Dosage: SLIDING SCALE, SUBCUTANEOUS
     Route: 058
     Dates: start: 20051010
  3. HUMALOG [Suspect]
     Indication: INSULIN-REQUIRING TYPE II DIABETES MELLITUS
     Dosage: SUBCUTANEOUS
     Route: 058
     Dates: end: 20051010
  4. HUMALOG [Suspect]
     Indication: INSULIN-REQUIRING TYPE II DIABETES MELLITUS
     Dosage: SUBCUTANEOUS
     Route: 058
     Dates: end: 20051010
  5. LEXAPRO [Concomitant]
  6. OXYCONTIN [Concomitant]
  7. COMBIVENT /GFR/ (SALBUTAMOL SULFATE, IPRATROPIUM BROMIDE) [Concomitant]
  8. HYDROXYZINE [Concomitant]
  9. COUMADIN [Concomitant]
  10. TIZANIDINE HCL [Concomitant]
  11. NADOLOL [Concomitant]

REACTIONS (7)
  - DYSPNOEA [None]
  - HYPERSENSITIVITY [None]
  - OEDEMA PERIPHERAL [None]
  - PRURITUS GENERALISED [None]
  - RASH [None]
  - SWELLING FACE [None]
  - SWOLLEN TONGUE [None]
